FAERS Safety Report 13596714 (Version 2)
Quarter: 2017Q2

REPORT INFORMATION
  Report Type: Spontaneous
  Country: US (occurrence: US)
  Receive Date: 20170531
  Receipt Date: 20170601
  Transmission Date: 20170830
  Serious: No
  Sender: FDA-Public Use
  Company Number: US-PFIZER INC-2017235836

PATIENT
  Age: 34 Year
  Sex: Female

DRUGS (2)
  1. MARCAINE [Suspect]
     Active Substance: BUPIVACAINE HYDROCHLORIDE
     Indication: FEMALE STERILISATION
     Dosage: UNK
     Dates: start: 20170417
  2. FENTANYL CITRATE. [Suspect]
     Active Substance: FENTANYL CITRATE
     Indication: FEMALE STERILISATION
     Dosage: 20 UG, UNK
     Dates: start: 20170417

REACTIONS (3)
  - Drug ineffective [Unknown]
  - Viral upper respiratory tract infection [Unknown]
  - Cough [Unknown]

NARRATIVE: CASE EVENT DATE: 20170417
